FAERS Safety Report 8066065-3 (Version None)
Quarter: 2012Q1

REPORT INFORMATION
  Report Type: 
  Country: None (occurrence: None)
  Receive Date: 20120124
  Receipt Date: 20120113
  Transmission Date: 20120608
  Serious: Yes (Other)
  Sender: FDA-Public Use
  Company Number: FR-JNJFOC-20120102900

PATIENT
  Age: 36 Year
  Sex: Female

DRUGS (6)
  1. REMICADE [Suspect]
     Route: 042
     Dates: start: 20080301
  2. METHOTREXATE [Concomitant]
     Route: 065
  3. METHOTREXATE [Concomitant]
     Route: 065
  4. REMICADE [Suspect]
     Indication: SARCOIDOSIS
     Route: 042
  5. CORTICOSTEROIDS [Concomitant]
     Route: 065
  6. REMICADE [Suspect]
     Route: 042
     Dates: start: 20061201, end: 20070701

REACTIONS (5)
  - NASAL OEDEMA [None]
  - SYNOVITIS [None]
  - PULMONARY MASS [None]
  - CUTANEOUS SARCOIDOSIS [None]
  - ARTHROPATHY [None]
